APPROVED DRUG PRODUCT: SULFAMETHOXAZOLE AND TRIMETHOPRIM
Active Ingredient: SULFAMETHOXAZOLE; TRIMETHOPRIM
Strength: 80MG/ML;16MG/ML
Dosage Form/Route: INJECTABLE;INJECTION
Application: A070627 | Product #001
Applicant: HIKMA PHARMACEUTICALS USA INC
Approved: Dec 29, 1987 | RLD: No | RS: No | Type: DISCN